FAERS Safety Report 24361298 (Version 2)
Quarter: 2024Q3

REPORT INFORMATION
  Report Type: Spontaneous
  Country: US (occurrence: US)
  Receive Date: 20240925
  Receipt Date: 20240925
  Transmission Date: 20241017
  Serious: No
  Sender: ALKEM
  Company Number: US-ALKEM LABORATORIES LIMITED-US-ALKEM-2024-18227

PATIENT
  Age: 6 Decade
  Sex: Male

DRUGS (5)
  1. CLOPIDOGREL [Suspect]
     Active Substance: CLOPIDOGREL BISULFATE
     Indication: Antiplatelet therapy
     Dosage: UNK
     Route: 065
  2. ASPIRIN [Suspect]
     Active Substance: ASPIRIN
     Indication: Antiplatelet therapy
     Dosage: 325 MILLIGRAM, QD (DAILY) (PRE-PROCEDURAL)
     Route: 048
  3. ASPIRIN [Suspect]
     Active Substance: ASPIRIN
     Dosage: 325 MILLIGRAM, QD (DAILY) (POST-PROCEDURAL)
     Route: 048
  4. PRASUGREL [Suspect]
     Active Substance: PRASUGREL
     Indication: Antiplatelet therapy
     Dosage: 60 MILLIGRAM (LOAD)
     Route: 048
  5. PRASUGREL [Suspect]
     Active Substance: PRASUGREL
     Dosage: 10 MILLIGRAM, QD (DAILY)
     Route: 048

REACTIONS (2)
  - Epistaxis [Recovered/Resolved]
  - Therapy non-responder [Unknown]
